FAERS Safety Report 10436356 (Version 1)
Quarter: 2014Q3

REPORT INFORMATION
  Report Type: Spontaneous
  Country: JP (occurrence: JP)
  Receive Date: 20140908
  Receipt Date: 20140908
  Transmission Date: 20150326
  Serious: Yes (Other)
  Sender: FDA-Public Use
  Company Number: PHHY2014JP114978

PATIENT
  Age: 66 Year
  Sex: Male

DRUGS (3)
  1. 5-FLUOROURACIL [Suspect]
     Active Substance: FLUOROURACIL
     Indication: OESOPHAGEAL CARCINOMA
  2. DOCETAXEL [Suspect]
     Active Substance: DOCETAXEL
     Indication: OESOPHAGEAL CARCINOMA
     Dosage: 70 MG/M2, UNK
  3. CISPLATIN. [Suspect]
     Active Substance: CISPLATIN
     Indication: OESOPHAGEAL CARCINOMA

REACTIONS (4)
  - Cytomegalovirus enterocolitis [Recovering/Resolving]
  - Gastrointestinal oedema [Recovering/Resolving]
  - Intestinal ulcer [Recovering/Resolving]
  - Colitis ischaemic [Recovering/Resolving]
